FAERS Safety Report 21433449 (Version 2)
Quarter: 2022Q4

REPORT INFORMATION
  Report Type: Other
  Country: IT (occurrence: None)
  Receive Date: 20221010
  Receipt Date: 20221106
  Transmission Date: 20230113
  Serious: Yes (Other)
  Sender: FDA-Public Use
  Company Number: IT-ROCHE-3191608

PATIENT
  Age: 76 Year
  Sex: Female
  Weight: 56 kg

DRUGS (5)
  1. PERTUZUMAB [Suspect]
     Active Substance: PERTUZUMAB
     Indication: HER2 positive breast cancer
     Dosage: MOST RECENT DOSE PRIOR TO THE EVENT: 24/OCT/2017
     Route: 042
     Dates: start: 20171003, end: 20171003
  2. TRASTUZUMAB [Suspect]
     Active Substance: TRASTUZUMAB
     Indication: HER2 positive breast cancer
     Dosage: MOST RECENT DOSE PRIOR TO THE EVENT: 24/OCT/2017
     Route: 041
     Dates: start: 20171003, end: 20171003
  3. DOCETAXEL [Suspect]
     Active Substance: DOCETAXEL
     Indication: HER2 positive breast cancer
     Dosage: MOST RECENT DOSE PRIOR TO AE 17/JAN/2018
     Route: 042
     Dates: start: 20171003
  4. ATORVASTATIN [Concomitant]
     Active Substance: ATORVASTATIN
     Dosage: ONGOING = CHECKED
     Dates: start: 20040615
  5. RAMIPRIL [Concomitant]
     Active Substance: RAMIPRIL
     Indication: Aortic valve incompetence
     Dosage: ONGOING = CHECKED
     Dates: start: 20200128

REACTIONS (1)
  - Aortic valve incompetence [Not Recovered/Not Resolved]

NARRATIVE: CASE EVENT DATE: 20200115
